FAERS Safety Report 6755275-0 (Version None)
Quarter: 2010Q2

REPORT INFORMATION
  Report Type: 
  Country: None (occurrence: None)
  Receive Date: 20100601
  Receipt Date: 20100520
  Transmission Date: 20101027
  Serious: Yes (Other)
  Sender: FDA-Public Use
  Company Number: 2010S1000078-002

PATIENT
  Age: 70 Year
  Sex: Female

DRUGS (5)
  1. LIVALO [Suspect]
  2. PITAVASTATIN [Concomitant]
  3. AMLODIPINE BESYLATE [Concomitant]
  4. VALSARTAN [Concomitant]
  5. TRICHLORMETHIAZIDE [Concomitant]

REACTIONS (1)
  - FEMORAL NECK FRACTURE [None]
